FAERS Safety Report 7686677-6 (Version None)
Quarter: 2011Q3

REPORT INFORMATION
  Report Type: 
  Country: None (occurrence: None)
  Receive Date: 20110816
  Receipt Date: 20110808
  Transmission Date: 20111222
  Serious: Yes (Hospitalization, Other)
  Sender: FDA-Public Use
  Company Number: BR-ACTELION-A-CH2011-51347

PATIENT
  Sex: Female
  Weight: 60 kg

DRUGS (5)
  1. ANTITHROMBOTIC AGENTS [Concomitant]
  2. TRACLEER [Suspect]
     Dosage: 125 MG, BID
     Route: 048
  3. TRACLEER [Suspect]
     Indication: PULMONARY ARTERIAL HYPERTENSION
     Dosage: 62.5 MG, BID
     Route: 048
     Dates: start: 20080101
  4. OXYGEN [Concomitant]
  5. SILDENAFIL CITRATE [Concomitant]

REACTIONS (4)
  - VASCULAR FRAGILITY [None]
  - DISEASE PROGRESSION [None]
  - PULMONARY ARTERIAL HYPERTENSION [None]
  - DYSPNOEA [None]
